FAERS Safety Report 7167254-2 (Version None)
Quarter: 2010Q4

REPORT INFORMATION
  Report Type: 
  Country: None (occurrence: None)
  Receive Date: 20101216
  Receipt Date: 20101208
  Transmission Date: 20110411
  Serious: Yes (Death, Hospitalization, Other)
  Sender: FDA-Public Use
  Company Number: IT-MPIJNJ-2010-06141

PATIENT

DRUGS (8)
  1. VELCADE [Suspect]
     Indication: PLASMABLASTIC LYMPHOMA
     Dosage: 1.3 MG/M2, CYCLIC
     Dates: start: 20090401
  2. DEXAMETHASONE [Suspect]
     Indication: PLASMABLASTIC LYMPHOMA
     Dosage: 40 MG, CYCLIC
     Dates: start: 20090401
  3. GEMCITABINE [Suspect]
     Indication: PLASMABLASTIC LYMPHOMA
     Dosage: 1250 MG/M2, CYCLIC
     Dates: start: 20090401
  4. OXALIPLATIN [Suspect]
     Indication: PLASMABLASTIC LYMPHOMA
     Dosage: 100 MG/M2, CYCLIC
     Dates: start: 20090401
  5. CYTARABINE [Suspect]
     Indication: PLASMABLASTIC LYMPHOMA
     Dosage: 50 MG, CYCLIC
     Route: 037
     Dates: start: 20090401
  6. PEGFILGRASTIM [Suspect]
     Indication: PLASMABLASTIC LYMPHOMA
     Dosage: 6 MG, CYCLIC
     Dates: start: 20090401
  7. EMTRICITABINE [Concomitant]
     Indication: HIV INFECTION
     Dosage: UNK
     Dates: start: 20090101
  8. TENOFOVIR DISOPROXIL FUMARATE [Concomitant]
     Indication: HIV INFECTION
     Dosage: UNK
     Dates: start: 20090101

REACTIONS (5)
  - COAGULOPATHY [None]
  - DISEASE PROGRESSION [None]
  - DISEASE RECURRENCE [None]
  - PLASMABLASTIC LYMPHOMA [None]
  - PNEUMONIA [None]
